FAERS Safety Report 9249704 (Version 1)
Quarter: 2013Q2

REPORT INFORMATION
  Report Type: Spontaneous
  Country: US (occurrence: US)
  Receive Date: 20130423
  Receipt Date: 20130423
  Transmission Date: 20140414
  Serious: Yes (Other)
  Sender: FDA-Public Use
  Company Number: US-BRISTOL-MYERS SQUIBB COMPANY-17255589

PATIENT
  Age: 74 Year
  Sex: Female
  Weight: 74.83 kg

DRUGS (1)
  1. YERVOY [Suspect]
     Indication: MALIGNANT MELANOMA
     Dosage: 210MG?REG 2:18DEC12?REG 3:22JAN2013
     Route: 042
     Dates: start: 20121127

REACTIONS (3)
  - Muscular weakness [Unknown]
  - Peroneal nerve palsy [Unknown]
  - Hepatic enzyme increased [Unknown]
